FAERS Safety Report 8178488-2 (Version None)
Quarter: 2012Q1

REPORT INFORMATION
  Report Type: 
  Country: None (occurrence: None)
  Receive Date: 20120301
  Receipt Date: 20120227
  Transmission Date: 20120608
  Serious: No
  Sender: FDA-Public Use
  Company Number: US-PFIZER INC-2012051667

PATIENT
  Sex: Female
  Weight: 81.633 kg

DRUGS (4)
  1. VENLAFAXINE [Concomitant]
     Dosage: UNK
  2. TOPAMAX [Concomitant]
     Dosage: UNK
  3. OXYCONTIN [Interacting]
     Dosage: UNK
     Dates: start: 20120101, end: 20120203
  4. LYRICA [Suspect]
     Indication: PAIN
     Dosage: 75 MG, 2X/DAY
     Route: 048
     Dates: start: 20120204, end: 20120215

REACTIONS (7)
  - AGGRESSION [None]
  - CONFUSIONAL STATE [None]
  - RETCHING [None]
  - MEMORY IMPAIRMENT [None]
  - SOMNOLENCE [None]
  - DRUG INTERACTION [None]
  - SPEECH DISORDER [None]
